FAERS Safety Report 5324445-0 (Version None)
Quarter: 2007Q2

REPORT INFORMATION
  Report Type: 
  Country: None (occurrence: None)
  Receive Date: 20070508
  Receipt Date: 20070423
  Transmission Date: 20071010
  Serious: Yes (Other)
  Sender: FDA-Public Use
  Company Number: 2006JP002216

PATIENT
  Age: 10 Year
  Sex: Female

DRUGS (7)
  1. PROGRAF [Suspect]
     Indication: HEART TRANSPLANT
     Dosage: ORAL
     Route: 048
  2. PREDNISOLONE [Concomitant]
  3. CELLCEPT [Concomitant]
  4. ENALAPRIL MALEATE [Concomitant]
  5. PRAVASTATIN [Concomitant]
  6. BUFFERIN [Concomitant]
  7. GASTER [Concomitant]

REACTIONS (6)
  - BRONCHITIS [None]
  - BRONCHITIS PNEUMOCOCCAL [None]
  - DIFFUSE PANBRONCHIOLITIS [None]
  - HERPES ZOSTER [None]
  - OTITIS MEDIA [None]
  - UPPER RESPIRATORY TRACT INFLAMMATION [None]
